FAERS Safety Report 6486882-0 (Version None)
Quarter: 2009Q4

REPORT INFORMATION
  Report Type: 
  Country: None (occurrence: None)
  Receive Date: 20091210
  Receipt Date: 20091125
  Transmission Date: 20100525
  Serious: Yes (Hospitalization)
  Sender: FDA-Public Use
  Company Number: JP-NAPPMUNDI-MAG-2009-0001148

PATIENT
  Sex: Female
  Weight: 45 kg

DRUGS (4)
  1. THEOPHYLLINE [Suspect]
     Indication: ASTHMA
     Dosage: 400 MG, DAILY
     Route: 048
     Dates: start: 20040101, end: 20090716
  2. THYRADIN [Suspect]
     Indication: HYPOTHYROIDISM
     Dosage: 50 MCG, DAILY
     Route: 048
     Dates: start: 20040101, end: 20090716
  3. SENNOSIDES [Concomitant]
     Indication: DRUG USE FOR UNKNOWN INDICATION
     Dosage: 0.45 G, DAILY
     Route: 048
     Dates: start: 20040101, end: 20090716
  4. MUCOSTA [Concomitant]
     Dosage: 300 MG, DAILY
     Route: 048
     Dates: start: 20040101, end: 20090717

REACTIONS (8)
  - ALTERED STATE OF CONSCIOUSNESS [None]
  - CARDIAC FAILURE CONGESTIVE [None]
  - CONVULSION [None]
  - NEUROLEPTIC MALIGNANT SYNDROME [None]
  - PERICARDIAL EFFUSION [None]
  - PYREXIA [None]
  - SPEECH DISORDER [None]
  - URINE OUTPUT DECREASED [None]
